FAERS Safety Report 26116694 (Version 1)
Quarter: 2025Q4

REPORT INFORMATION
  Report Type: Spontaneous
  Country: EU (occurrence: EU)
  Receive Date: 20251203
  Receipt Date: 20251203
  Transmission Date: 20260117
  Serious: Yes (Hospitalization, Other)
  Sender: AMGEN
  Company Number: None

PATIENT
  Age: 50 Year
  Sex: Female
  Weight: 60 kg

DRUGS (2)
  1. AIMOVIG [Suspect]
     Active Substance: ERENUMAB-AOOE
     Indication: Headache
     Dosage: 140 MG, 1 TOTAL, DOSE 1, ADMINISTERED IN THE MORNING
     Route: 065
     Dates: start: 20251105
  2. INDOMETHACIN [Suspect]
     Active Substance: INDOMETHACIN
     Indication: Headache
     Dosage: 100 MG, 1 TOTAL, 1 DOSE ADMINISTERED IN THE EVENING
     Route: 054
     Dates: start: 20251105, end: 20251105

REACTIONS (6)
  - Malaise [Recovered/Resolved with Sequelae]
  - Head discomfort [Recovered/Resolved with Sequelae]
  - Asthenia [Recovered/Resolved with Sequelae]
  - Dizziness [Recovered/Resolved with Sequelae]
  - Dyspnoea [Recovered/Resolved with Sequelae]
  - Anxiety [Recovered/Resolved with Sequelae]

NARRATIVE: CASE EVENT DATE: 20251105
